FAERS Safety Report 25897249 (Version 1)
Quarter: 2025Q4

REPORT INFORMATION
  Report Type: Spontaneous
  Country: US (occurrence: None)
  Receive Date: 20251008
  Receipt Date: 20251008
  Transmission Date: 20260118
  Serious: Yes (Other)
  Sender: FDA-CTU
  Company Number: None

PATIENT
  Age: 39 Year
  Sex: Female
  Weight: 57.15 kg

DRUGS (16)
  1. DUPIXENT [Suspect]
     Active Substance: DUPILUMAB
     Indication: Dermatitis atopic
     Dosage: OTHER FREQUENCY : EVERY 2 WEEKS;?
     Route: 058
     Dates: start: 20240911, end: 20250901
  2. NORETHINDRONE [Concomitant]
     Active Substance: NORETHINDRONE
  3. VITAMINS [Concomitant]
     Active Substance: VITAMINS
  4. Adbry 300mg/2ml pen [Concomitant]
  5. Adapalen 0.1% Gel [Concomitant]
  6. CLOBETASOL [Concomitant]
     Active Substance: CLOBETASOL
  7. Spironolactone 50 mg Tab [Concomitant]
  8. VITAMINS [Concomitant]
     Active Substance: VITAMINS
  9. METFORMIN [Concomitant]
     Active Substance: METFORMIN HYDROCHLORIDE
  10. KETOCONAZOLE [Concomitant]
     Active Substance: KETOCONAZOLE
  11. Elidel 1 % cream [Concomitant]
  12. AZELAIC ACID [Concomitant]
     Active Substance: AZELAIC ACID
  13. MINOCYCLINE [Concomitant]
     Active Substance: MINOCYCLINE HYDROCHLORIDE
  14. Traimcinolone 0.1% cream [Concomitant]
  15. TRETINOIN [Concomitant]
     Active Substance: TRETINOIN
  16. Clindamycin Phosphate 1% solution [Concomitant]

REACTIONS (3)
  - Hypersensitivity [None]
  - Neuralgia [None]
  - Therapy cessation [None]

NARRATIVE: CASE EVENT DATE: 20251008
